FAERS Safety Report 24335001 (Version 1)
Quarter: 2024Q3

REPORT INFORMATION
  Report Type: Report from Study
  Country: US (occurrence: US)
  Receive Date: 20240918
  Receipt Date: 20240918
  Transmission Date: 20241016
  Serious: Yes (Hospitalization)
  Sender: BAYER
  Company Number: US-BAYER-2024A133364

PATIENT
  Age: 57 Year
  Sex: Male
  Weight: 83.9 kg

DRUGS (12)
  1. ADEMPAS [Suspect]
     Active Substance: RIOCIGUAT
     Indication: Pulmonary arterial hypertension
     Dosage: UNK
     Dates: start: 20231228
  2. ADEMPAS [Suspect]
     Active Substance: RIOCIGUAT
     Indication: Pulmonary arterial hypertension
     Dosage: 2.5 MG, TID
     Route: 048
  3. ELIQUIS [Concomitant]
     Active Substance: APIXABAN
  4. ASPIRIN [Concomitant]
     Active Substance: ASPIRIN
  5. VELETRI [Concomitant]
     Active Substance: EPOPROSTENOL
  6. SOTATERCEPT [Concomitant]
     Active Substance: SOTATERCEPT
  7. COLCHICINE [Concomitant]
     Active Substance: COLCHICINE
  8. VALSARTAN [Concomitant]
     Active Substance: VALSARTAN
  9. ACETAMINOPHEN [Concomitant]
     Active Substance: ACETAMINOPHEN
  10. PRAVASTATIN SODIUM [Concomitant]
     Active Substance: PRAVASTATIN SODIUM
  11. AMBRISENTAN [Concomitant]
     Active Substance: AMBRISENTAN
  12. STIOLTO RESPIMAT [Concomitant]
     Active Substance: OLODATEROL HYDROCHLORIDE\TIOTROPIUM BROMIDE MONOHYDRATE

REACTIONS (3)
  - Diarrhoea [None]
  - Renal impairment [None]
  - Weight decreased [None]

NARRATIVE: CASE EVENT DATE: 20240912
